FAERS Safety Report 4568390-7 (Version None)
Quarter: 2005Q1

REPORT INFORMATION
  Report Type: 
  Country: None (occurrence: None)
  Receive Date: 20050131
  Receipt Date: 20050124
  Transmission Date: 20050727
  Serious: Yes (Other)
  Sender: FDA-Public Use
  Company Number: 2005017926

PATIENT
  Age: 72 Year
  Sex: Female

DRUGS (3)
  1. LIPITOR [Suspect]
     Indication: BLOOD CHOLESTEROL INCREASED
     Dosage: 10 MG
  2. GLUCOSAMINE (GLUCOSAMINE) [Concomitant]
  3. ANALGESICS (ANALGESICS) [Concomitant]

REACTIONS (3)
  - BITE [None]
  - HIP ARTHROPLASTY [None]
  - MYALGIA [None]
